FAERS Safety Report 11911042 (Version 1)
Quarter: 2016Q1

REPORT INFORMATION
  Report Type: Spontaneous
  Country: US (occurrence: None)
  Receive Date: 20160111
  Receipt Date: 20160111
  Transmission Date: 20160526
  Serious: Yes (Other)
  Sender: FDA-Public Use
  Company Number: None

PATIENT
  Age: 36 Year
  Sex: Female
  Weight: 56.7 kg

DRUGS (7)
  1. VITAMIN D3 [Concomitant]
     Active Substance: CHOLECALCIFEROL
  2. PROBIOTIC [Concomitant]
     Active Substance: PROBIOTICS NOS
  3. PAROXETINE [Suspect]
     Active Substance: PAROXETINE\PAROXETINE HYDROCHLORIDE
     Indication: ANXIETY
     Dosage: 1 PILL ONCE DAILY
     Route: 048
     Dates: start: 20150410, end: 20151231
  4. LEVOTHYROXINE. [Concomitant]
     Active Substance: LEVOTHYROXINE
  5. PAROXETINE [Suspect]
     Active Substance: PAROXETINE\PAROXETINE HYDROCHLORIDE
     Indication: DEPRESSION
     Dosage: 1 PILL ONCE DAILY
     Route: 048
     Dates: start: 20150410, end: 20151231
  6. MV [Concomitant]
  7. KRILL OIL [Concomitant]
     Active Substance: DIETARY SUPPLEMENT

REACTIONS (16)
  - Abnormal dreams [None]
  - Exercise tolerance decreased [None]
  - Weight increased [None]
  - Nausea [None]
  - Drug ineffective [None]
  - Dyspnoea [None]
  - Headache [None]
  - Eye irritation [None]
  - Somnolence [None]
  - Anorgasmia [None]
  - Drug withdrawal syndrome [None]
  - Hot flush [None]
  - Sensory disturbance [None]
  - Muscle spasms [None]
  - Iron deficiency anaemia [None]
  - Vomiting [None]

NARRATIVE: CASE EVENT DATE: 20150901
